FAERS Safety Report 10592773 (Version 2)
Quarter: 2015Q1

REPORT INFORMATION
  Report Type: Spontaneous
  Country: IT (occurrence: IT)
  Receive Date: 20141119
  Receipt Date: 20150130
  Transmission Date: 20150720
  Serious: Yes (Other)
  Sender: FDA-Public Use
  Company Number: IT-PFIZER INC-2014314851

PATIENT
  Age: 15 Day
  Sex: Male
  Weight: 1 kg

DRUGS (6)
  1. METRONIDAZOLO BIOINDUSTRIA [Concomitant]
     Indication: SEPSIS
     Dosage: 10 MG, DAILY
     Route: 042
     Dates: start: 20130521, end: 20130528
  2. DIFLUCAN [Suspect]
     Active Substance: FLUCONAZOLE
     Indication: ANTIBIOTIC PROPHYLAXIS
     Dosage: 9 MG, DAILY
     Route: 042
     Dates: start: 20130519, end: 20130528
  3. ZENGAC [Interacting]
     Active Substance: VANCOMYCIN HYDROCHLORIDE
     Indication: SEPSIS
     Dosage: 39 MG, DAILY
     Route: 042
     Dates: start: 20130520, end: 20130527
  4. DICOFLOR [Concomitant]
     Dosage: 5 GTT, DAILY
     Route: 048
     Dates: start: 20130509, end: 20130710
  5. ADRENALINA S.A.L.F [Concomitant]
     Active Substance: EPINEPHRINE HYDROCHLORIDE
     Indication: CARDIAC OUTPUT DECREASED
     Dosage: 0.4 UG/KG
     Route: 042
     Dates: start: 20130521, end: 20130522
  6. AMICASIL [Interacting]
     Active Substance: AMIKACIN SULFATE
     Indication: BACTERIAL SEPSIS
     Dosage: 20 MG, DAILY
     Route: 042
     Dates: start: 20130520, end: 20130524

REACTIONS (2)
  - Anaemia [Recovered/Resolved]
  - Drug interaction [Recovered/Resolved]

NARRATIVE: CASE EVENT DATE: 20130522
